FAERS Safety Report 5644739-9 (Version None)
Quarter: 2008Q1

REPORT INFORMATION
  Report Type: 
  Country: None (occurrence: None)
  Receive Date: 20080229
  Receipt Date: 20070706
  Transmission Date: 20080703
  Serious: Yes (Other)
  Sender: FDA-Public Use
  Company Number: A0662204A

PATIENT
  Age: 47 Year
  Sex: Male

DRUGS (5)
  1. VALACYCLOVIR [Suspect]
     Indication: PROPHYLAXIS
     Dosage: 1G PER DAY
     Route: 048
     Dates: start: 20070517
  2. PRAVACHOL [Concomitant]
  3. DIGOXIN [Concomitant]
  4. LORAZEPAM [Concomitant]
  5. IMODIUM [Concomitant]

REACTIONS (1)
  - HEPATIC ENZYME INCREASED [None]
